FAERS Safety Report 9316221 (Version 1)
Quarter: 2013Q2

REPORT INFORMATION
  Report Type: Spontaneous
  Country: US (occurrence: None)
  Receive Date: 20130522
  Receipt Date: 20130522
  Transmission Date: 20140414
  Serious: Yes (Hospitalization)
  Sender: FDA-Public Use
  Company Number: 2013AP005300

PATIENT
  Sex: Female

DRUGS (3)
  1. NEVIRAPINE [Suspect]
     Indication: HIV INFECTION
  2. EFAVIRENZ [Concomitant]
  3. COTRIMOXAZOLE [Concomitant]

REACTIONS (4)
  - Rash maculo-papular [None]
  - Tongue disorder [None]
  - Oropharyngeal discomfort [None]
  - Oral mucosal erythema [None]
